FAERS Safety Report 13141072 (Version 1)
Quarter: 2017Q1

REPORT INFORMATION
  Report Type: Spontaneous
  Country: US (occurrence: US)
  Receive Date: 20170123
  Receipt Date: 20170123
  Transmission Date: 20170428
  Serious: No
  Sender: FDA-Public Use
  Company Number: US-UNITED THERAPEUTICS-UNT-2016-016335

PATIENT
  Age: 60 Year
  Sex: Female
  Weight: 102.49 kg

DRUGS (6)
  1. TYVASO [Suspect]
     Active Substance: TREPROSTINIL
     Indication: PULMONARY ARTERIAL HYPERTENSION
     Dosage: 18-54 MICROGRAMS, QID
     Dates: start: 20161010
  2. TYVASO [Suspect]
     Active Substance: TREPROSTINIL
     Dosage: UNK
  3. ADCIRCA [Concomitant]
     Active Substance: TADALAFIL
     Indication: PRODUCT USED FOR UNKNOWN INDICATION
  4. WARFARIN [Concomitant]
     Active Substance: WARFARIN
     Indication: PULMONARY ARTERIAL HYPERTENSION
  5. TYVASO [Suspect]
     Active Substance: TREPROSTINIL
     Dosage: UNK
  6. TYVASO [Suspect]
     Active Substance: TREPROSTINIL
     Dosage: UNK

REACTIONS (15)
  - Throat irritation [Not Recovered/Not Resolved]
  - Diarrhoea [Unknown]
  - Malaise [Unknown]
  - Fatigue [Unknown]
  - Seasonal allergy [Unknown]
  - Nasal congestion [Unknown]
  - Chest pain [Unknown]
  - Somnolence [Not Recovered/Not Resolved]
  - Palpitations [Not Recovered/Not Resolved]
  - Asthenia [Unknown]
  - Sinus congestion [Unknown]
  - Cough [Recovering/Resolving]
  - Headache [Unknown]
  - Oropharyngeal pain [Not Recovered/Not Resolved]
  - Dizziness [Not Recovered/Not Resolved]

NARRATIVE: CASE EVENT DATE: 201610
